FAERS Safety Report 4953107-4 (Version None)
Quarter: 2006Q1

REPORT INFORMATION
  Report Type: 
  Country: None (occurrence: None)
  Receive Date: 20060321
  Receipt Date: 20060308
  Transmission Date: 20060701
  Serious: Yes (Other)
  Sender: FDA-Public Use
  Company Number: 2006S1000001

PATIENT
  Sex: Female

DRUGS (1)
  1. SORIATANE [Suspect]
     Indication: PSORIASIS
     Dosage: PO
     Route: 048
     Dates: start: 20050801, end: 20051205

REACTIONS (24)
  - ARTHRALGIA [None]
  - BACK PAIN [None]
  - BEDRIDDEN [None]
  - BLISTER [None]
  - CONDITION AGGRAVATED [None]
  - DRY MOUTH [None]
  - HEADACHE [None]
  - HEPATITIS C [None]
  - LIP EXFOLIATION [None]
  - LIP ULCERATION [None]
  - MUCOSAL ULCERATION [None]
  - NAIL DISORDER [None]
  - NAIL INFECTION [None]
  - NASAL MUCOSAL DISORDER [None]
  - NIGHT BLINDNESS [None]
  - OEDEMA PERIPHERAL [None]
  - ONYCHOMADESIS [None]
  - PAIN IN EXTREMITY [None]
  - PAIN OF SKIN [None]
  - SKIN ATROPHY [None]
  - SKIN EXFOLIATION [None]
  - THIRST [None]
  - VISION BLURRED [None]
  - WOUND SECRETION [None]
